FAERS Safety Report 5650682-1 (Version None)
Quarter: 2008Q1

REPORT INFORMATION
  Report Type: 
  Country: None (occurrence: None)
  Receive Date: 20080305
  Receipt Date: 20080305
  Transmission Date: 20080703
  Serious: Yes (Life-Threatening, Hospitalization)
  Sender: FDA-Public Use
  Company Number: None

PATIENT
  Age: 69 Year
  Sex: Female
  Weight: 92 kg

DRUGS (9)
  1. HEPARIN [Suspect]
     Indication: DEEP VEIN THROMBOSIS
     Dosage: TITRATED TO  THERAPEUTIC APTT; CONTINUOUS; IV
     Route: 042
     Dates: start: 20080206, end: 20080206
  2. DALTEPARIN SODIUM [Suspect]
     Indication: THROMBOSIS PROPHYLAXIS
     Dosage: 5000 UNITS DAILY SQ
     Route: 058
     Dates: start: 20080123, end: 20080205
  3. DIAZEPAM [Concomitant]
  4. ESOMEPRAZOLE MAGNESIUM [Concomitant]
  5. HYDROCHLOROQUINE [Concomitant]
  6. POTASSIUM CHLORIDE [Concomitant]
  7. INSULIN [Concomitant]
  8. SONATA [Concomitant]
  9. TORSEMIDE [Concomitant]

REACTIONS (2)
  - DEEP VEIN THROMBOSIS [None]
  - HEPARIN-INDUCED THROMBOCYTOPENIA [None]
